FAERS Safety Report 6831692-5 (Version None)
Quarter: 2010Q3

REPORT INFORMATION
  Report Type: 
  Country: None (occurrence: None)
  Receive Date: 20100707
  Receipt Date: 20100623
  Transmission Date: 20110219
  Serious: Yes (Hospitalization)
  Sender: FDA-Public Use
  Company Number: A-NJ2009-32259

PATIENT
  Age: 56 Year
  Sex: Male

DRUGS (2)
  1. VENTAVIS [Suspect]
     Indication: PULMONARY ARTERIAL HYPERTENSION
     Dosage: RESPIRATORY
     Dates: start: 20091013, end: 20100501
  2. SILDENAFIL CITRATE [Concomitant]

REACTIONS (4)
  - AMMONIA INCREASED [None]
  - ENCEPHALOPATHY [None]
  - LIVER DISORDER [None]
  - LIVER TRANSPLANT [None]
